FAERS Safety Report 14308876 (Version 1)
Quarter: 2017Q4

REPORT INFORMATION
  Report Type: Spontaneous
  Country: US (occurrence: US)
  Receive Date: 20171219
  Receipt Date: 20171219
  Transmission Date: 20180321
  Serious: Yes (Hospitalization)
  Sender: FDA-Public Use
  Company Number: None

PATIENT
  Age: 62 Year
  Sex: Male
  Weight: 108.2 kg

DRUGS (1)
  1. LITHIUM. [Suspect]
     Active Substance: LITHIUM
     Indication: SCHIZOPHRENIA
     Route: 048
     Dates: start: 20120424, end: 20120426

REACTIONS (5)
  - Nephrogenic diabetes insipidus [None]
  - Psychotic disorder [None]
  - Respiratory failure [None]
  - Self-injurious ideation [None]
  - Violence-related symptom [None]

NARRATIVE: CASE EVENT DATE: 20120426
